FAERS Safety Report 18871434 (Version 4)
Quarter: 2021Q2

REPORT INFORMATION
  Report Type: Report from Study
  Country: FR (occurrence: FR)
  Receive Date: 20210210
  Receipt Date: 20210504
  Transmission Date: 20210717
  Serious: Yes (Other)
  Sender: FDA-Public Use
  Company Number: NVSC2021FR030062

PATIENT
  Age: 50 Year
  Sex: Male
  Weight: 76.1 kg

DRUGS (3)
  1. CGP 41251 / PKC 412A [Suspect]
     Active Substance: MIDOSTAURIN
     Indication: ACUTE MYELOID LEUKAEMIA
     Dosage: 100 MG PER DAY
     Route: 048
     Dates: start: 20200211
  2. IDARUBICIN [Suspect]
     Active Substance: IDARUBICIN
     Indication: ACUTE MYELOID LEUKAEMIA
     Dosage: 17 MILLIGRAM / D1 D2 D3 D4 D5 ~ 9 MG/M?
     Route: 042
     Dates: start: 20200204, end: 20200208
  3. CYTARABINE. [Suspect]
     Active Substance: CYTARABINE
     Indication: ACUTE MYELOID LEUKAEMIA
     Dosage: 380 MILLIGRAM / D1 D2 D3 D4 D5 D6 D7 ~ 200 MG/M?
     Route: 042
     Dates: start: 20200204, end: 20200208

REACTIONS (1)
  - Hepatic cytolysis [Not Recovered/Not Resolved]

NARRATIVE: CASE EVENT DATE: 20210121
